FAERS Safety Report 9122406 (Version 1)
Quarter: 2013Q1

REPORT INFORMATION
  Report Type: Spontaneous
  Country: US (occurrence: US)
  Receive Date: 20130114
  Receipt Date: 20130114
  Transmission Date: 20140127
  Serious: Yes (Other)
  Sender: FDA-Public Use
  Company Number: US-MYLANLABS-2013S1000318

PATIENT
  Age: 64 Year
  Sex: Male

DRUGS (12)
  1. ALLOPURINOL [Suspect]
     Dosage: 100 MG TWICE DAILY
     Route: 065
  2. HYDROXYCARBAMIDE [Concomitant]
     Route: 065
  3. LORAZEPAM [Concomitant]
     Route: 065
  4. AZITHROMYCIN [Concomitant]
     Route: 065
  5. CALCIUM [Concomitant]
     Route: 065
  6. FERROUS SULFATE [Concomitant]
     Route: 065
  7. AMLODIPINE [Concomitant]
     Route: 065
  8. TAMSULOSIN [Concomitant]
     Route: 065
  9. POTASSIUM CITRATE [Concomitant]
     Route: 065
  10. FUROSEMIDE [Concomitant]
     Route: 065
  11. CALCITRIOL [Concomitant]
     Route: 065
  12. LANSOPRAZOLE [Concomitant]
     Route: 065

REACTIONS (1)
  - Interstitial granulomatous dermatitis [Recovered/Resolved]
